FAERS Safety Report 10901741 (Version 4)
Quarter: 2015Q1

REPORT INFORMATION
  Report Type: Report from Study
  Country: GB (occurrence: GB)
  Receive Date: 20150310
  Receipt Date: 20150317
  Transmission Date: 20150721
  Serious: Yes (Death, Hospitalization)
  Sender: FDA-Public Use
  Company Number: GB-009507513-1503GBR003866

PATIENT
  Age: 71 Year
  Sex: Male

DRUGS (1)
  1. PEMBROLIZUMAB. [Suspect]
     Active Substance: PEMBROLIZUMAB
     Indication: METASTATIC MALIGNANT MELANOMA
     Dosage: 2 MG/KG, 160 MG TOTAL DAILY DOSE, Q3W,
     Route: 042
     Dates: start: 20141126, end: 20150109

REACTIONS (2)
  - Large intestine perforation [Fatal]
  - Colitis [Unknown]

NARRATIVE: CASE EVENT DATE: 20150119
